FAERS Safety Report 8365820-X (Version None)
Quarter: 2012Q2

REPORT INFORMATION
  Report Type: 
  Country: None (occurrence: None)
  Receive Date: 20120517
  Receipt Date: 20120509
  Transmission Date: 20120825
  Serious: Yes (Hospitalization)
  Sender: FDA-Public Use
  Company Number: US-BRISTOL-MYERS SQUIBB COMPANY-16581563

PATIENT
  Age: 52 Year
  Sex: Male
  Weight: 74 kg

DRUGS (2)
  1. CISPLATIN [Suspect]
     Indication: OESOPHAGEAL ADENOCARCINOMA
     Dosage: LAST ADMIN DT 2APR12
     Dates: start: 20120227
  2. TAXOL [Suspect]
     Indication: OESOPHAGEAL ADENOCARCINOMA
     Dosage: LAST ADMIN DT 2APR12 ON DAY 1,8,15,22,29,36
     Dates: start: 20120227

REACTIONS (4)
  - NAUSEA [None]
  - WEIGHT DECREASED [None]
  - DEHYDRATION [None]
  - VOMITING [None]
